FAERS Safety Report 8588352-2 (Version None)
Quarter: 2012Q3

REPORT INFORMATION
  Report Type: 
  Country: None (occurrence: None)
  Receive Date: 20120813
  Receipt Date: 20120801
  Transmission Date: 20120928
  Serious: Yes (Hospitalization)
  Sender: FDA-Public Use
  Company Number: US-BAYER-2012-037892

PATIENT
  Age: 33 Year
  Sex: Female
  Weight: 49.887 kg

DRUGS (8)
  1. NEURONTIN [Concomitant]
  2. SOMA [Concomitant]
  3. PEPCID [Concomitant]
  4. LIDOCAINE [Concomitant]
  5. YASMIN [Suspect]
     Indication: CONTRACEPTION
     Dosage: UNK
     Dates: start: 20000101, end: 20060101
  6. AZITHROMYCIN [Concomitant]
     Dosage: 250 MG, UNK
  7. AMBIEN [Concomitant]
  8. HYDROCODONE BITARTRATE [Concomitant]

REACTIONS (5)
  - CHOLELITHIASIS [None]
  - CHOLECYSTITIS CHRONIC [None]
  - INJURY [None]
  - BILE DUCT STONE [None]
  - ABDOMINAL PAIN [None]
